FAERS Safety Report 8402815-1 (Version None)
Quarter: 2012Q2

REPORT INFORMATION
  Report Type: 
  Country: None (occurrence: None)
  Receive Date: 20120601
  Receipt Date: 20120522
  Transmission Date: 20120825
  Serious: Yes (Other)
  Sender: FDA-Public Use
  Company Number: US-BAYER-2012-031603

PATIENT
  Age: 67 Year
  Sex: Male

DRUGS (3)
  1. ASPIRIN [Suspect]
  2. DOXYCYCLINE [Suspect]
  3. XARELTO [Suspect]
     Indication: THROMBOSIS PROPHYLAXIS
     Dosage: 10 MG, UNK
     Route: 048
     Dates: start: 20111218, end: 20111230

REACTIONS (1)
  - RASH GENERALISED [None]
